FAERS Safety Report 6453029-6 (Version None)
Quarter: 2009Q4

REPORT INFORMATION
  Report Type: 
  Country: None (occurrence: None)
  Receive Date: 20091124
  Receipt Date: 20090827
  Transmission Date: 20100525
  Serious: No
  Sender: FDA-Public Use
  Company Number: US-ABBOTT-09P-163-0584664-00

PATIENT
  Sex: Male
  Weight: 113.5 kg

DRUGS (2)
  1. TRICOR [Suspect]
     Indication: BLOOD CHOLESTEROL INCREASED
     Route: 048
     Dates: start: 20090626, end: 20090707
  2. HYDROXYZINE HCL [Concomitant]
     Indication: PRURITUS
     Route: 048
     Dates: start: 20090706, end: 20090706

REACTIONS (13)
  - ABDOMINAL PAIN UPPER [None]
  - ASTHENIA [None]
  - CHEST PAIN [None]
  - DYSPNOEA [None]
  - EXCORIATION [None]
  - FALL [None]
  - HEAD INJURY [None]
  - HEADACHE [None]
  - INCORRECT DRUG ADMINISTRATION DURATION [None]
  - MYALGIA [None]
  - PALPITATIONS [None]
  - PRURITUS [None]
  - WOUND HAEMORRHAGE [None]
